FAERS Safety Report 21628825 (Version 2)
Quarter: 2023Q2

REPORT INFORMATION
  Report Type: Report from Study
  Country: US (occurrence: US)
  Receive Date: 20221122
  Receipt Date: 20230419
  Transmission Date: 20230722
  Serious: No
  Sender: FDA-Public Use
  Company Number: US-ABBVIE-22K-163-4470794-00

PATIENT
  Age: 51 Year
  Sex: Female

DRUGS (2)
  1. SKYRIZI [Suspect]
     Active Substance: RISANKIZUMAB-RZAA
     Indication: Psoriasis
     Route: 058
  2. SKYRIZI [Suspect]
     Active Substance: RISANKIZUMAB-RZAA
     Indication: Psoriatic arthropathy
     Route: 058
     Dates: start: 20210514

REACTIONS (4)
  - Nail bed disorder [Recovering/Resolving]
  - Nail bed tenderness [Recovered/Resolved]
  - Arthritis [Unknown]
  - Nail bed disorder [Recovered/Resolved]

NARRATIVE: CASE EVENT DATE: 20210514
